FAERS Safety Report 10244908 (Version 1)
Quarter: 2014Q2

REPORT INFORMATION
  Report Type: Spontaneous
  Country: US (occurrence: None)
  Receive Date: 20140616
  Receipt Date: 20140616
  Transmission Date: 20141212
  Serious: Yes (Disabling)
  Sender: FDA-Public Use
  Company Number: None

PATIENT
  Age: 91 Year
  Sex: Female
  Weight: 64.41 kg

DRUGS (2)
  1. ZYVOX ZYVOX [Suspect]
     Indication: ENTEROCOCCAL INFECTION
     Dates: start: 20140609, end: 20140614
  2. ZYVOX ZYVOX [Suspect]
     Indication: DEPRESSION
     Dates: start: 20140609, end: 20140614

REACTIONS (5)
  - Drug interaction [None]
  - Asthenia [None]
  - Tremor [None]
  - Confusional state [None]
  - Tremor [None]
